FAERS Safety Report 10343864 (Version 1)
Quarter: 2014Q3

REPORT INFORMATION
  Report Type: Spontaneous
  Country: JP (occurrence: JP)
  Receive Date: 20140726
  Receipt Date: 20140726
  Transmission Date: 20150326
  Serious: No
  Sender: FDA-Public Use
  Company Number: PHHY2013JP158911

PATIENT
  Age: 73 Year
  Sex: Female

DRUGS (6)
  1. DASATINIB [Suspect]
     Active Substance: DASATINIB
     Indication: CHROMOSOME ANALYSIS ABNORMAL
  2. DASATINIB [Suspect]
     Active Substance: DASATINIB
     Indication: ACUTE LYMPHOCYTIC LEUKAEMIA
  3. GLIVEC [Suspect]
     Active Substance: IMATINIB MESYLATE
     Indication: CHROMOSOME ANALYSIS ABNORMAL
  4. GLIVEC [Suspect]
     Active Substance: IMATINIB MESYLATE
     Indication: ACUTE LYMPHOCYTIC LEUKAEMIA
  5. TASIGNA [Suspect]
     Active Substance: NILOTINIB
     Indication: CHROMOSOME ANALYSIS ABNORMAL
     Dosage: 800 MG
     Dates: start: 20130130
  6. TASIGNA [Suspect]
     Active Substance: NILOTINIB
     Indication: ACUTE LYMPHOCYTIC LEUKAEMIA
     Dates: start: 20130508

REACTIONS (1)
  - Gene mutation [Recovered/Resolved]
